FAERS Safety Report 6817540-8 (Version None)
Quarter: 2010Q3

REPORT INFORMATION
  Report Type: 
  Country: None (occurrence: None)
  Receive Date: 20100706
  Receipt Date: 20100625
  Transmission Date: 20110219
  Serious: No
  Sender: FDA-Public Use
  Company Number: US-JNJFOC-20100608306

PATIENT
  Sex: Female
  Weight: 84.82 kg

DRUGS (11)
  1. FENTANYL [Suspect]
     Indication: NEUROPATHY PERIPHERAL
     Route: 062
  2. FENTANYL [Suspect]
     Indication: FIBROMYALGIA
     Route: 062
  3. NORVASC [Concomitant]
     Indication: BLOOD PRESSURE
     Route: 048
  4. SYNTHROID [Concomitant]
     Indication: HYPOTHYROIDISM
     Route: 048
  5. NEURONTIN [Concomitant]
     Indication: NEUROPATHY PERIPHERAL
     Route: 048
  6. EFFEXOR [Concomitant]
     Indication: DEPRESSION
     Route: 048
  7. EFFEXOR [Concomitant]
     Dosage: EVERY MORNING
     Route: 048
  8. ATIVAN [Concomitant]
     Indication: ANXIETY
     Dosage: EVERY MORNING
     Route: 048
  9. ATIVAN [Concomitant]
     Route: 048
  10. LIPITOR [Concomitant]
     Indication: BLOOD CHOLESTEROL
     Route: 048
  11. TRICOR [Concomitant]
     Indication: BLOOD TRIGLYCERIDES
     Route: 048

REACTIONS (1)
  - WRONG TECHNIQUE IN DRUG USAGE PROCESS [None]
